FAERS Safety Report 9373784 (Version 3)
Quarter: 2013Q3

REPORT INFORMATION
  Report Type: Spontaneous
  Country: TW (occurrence: TW)
  Receive Date: 20130628
  Receipt Date: 20130805
  Transmission Date: 20140515
  Serious: Yes (Other)
  Sender: FDA-Public Use
  Company Number: TW-AMGEN-TWNSP2013045291

PATIENT
  Age: 52 Year
  Sex: Male

DRUGS (3)
  1. ENBREL [Suspect]
     Indication: ANKYLOSING SPONDYLITIS
     Dosage: 25 MG, WEEKLY
     Route: 058
     Dates: start: 20110321, end: 20130619
  2. CELEBREX [Concomitant]
     Dosage: 200 MG, 1X/DAY
     Dates: start: 20110516, end: 20120327
  3. INH [Concomitant]
     Dosage: 300 MG, 1X/DAY
     Dates: start: 20110516, end: 20110904

REACTIONS (1)
  - Lip and/or oral cavity cancer [Not Recovered/Not Resolved]
